FAERS Safety Report 6938092-8 (Version None)
Quarter: 2010Q3

REPORT INFORMATION
  Report Type: 
  Country: None (occurrence: None)
  Receive Date: 20100824
  Receipt Date: 20100820
  Transmission Date: 20110219
  Serious: Yes (Death, Hospitalization)
  Sender: FDA-Public Use
  Company Number: JP-ELI_LILLY_AND_COMPANY-JP201007007380

PATIENT
  Age: 71 Year
  Sex: Male

DRUGS (1)
  1. GEMZAR [Suspect]
     Indication: PANCREATIC CARCINOMA STAGE IV
     Route: 042
     Dates: start: 20090806

REACTIONS (4)
  - ATYPICAL MYCOBACTERIAL INFECTION [None]
  - DECREASED APPETITE [None]
  - DUODENAL STENOSIS [None]
  - MALIGNANT NEOPLASM PROGRESSION [None]
